FAERS Safety Report 7681215-6 (Version None)
Quarter: 2011Q3

REPORT INFORMATION
  Report Type: 
  Country: None (occurrence: None)
  Receive Date: 20110812
  Receipt Date: 20110805
  Transmission Date: 20111222
  Serious: Yes (Hospitalization)
  Sender: FDA-Public Use
  Company Number: IT-ELI_LILLY_AND_COMPANY-IT201108001981

PATIENT
  Sex: Female

DRUGS (7)
  1. HUMALOG [Suspect]
     Indication: TYPE 2 DIABETES MELLITUS
     Dosage: 23 DF, QD
     Route: 058
     Dates: start: 20090501
  2. RAMIPRIL [Concomitant]
     Dosage: 5 MG, UNK
     Route: 048
  3. NORVASC [Concomitant]
     Dosage: 5 MG, UNK
  4. MEPRAL [Concomitant]
     Dosage: 20 MG, UNK
     Route: 048
  5. FUROSEMIDE [Concomitant]
     Dosage: 75 MG, UNK
     Route: 048
  6. SODIUM BICARBONATE [Concomitant]
     Dosage: 4 G, UNK
     Route: 048
  7. CARVEDILOL [Concomitant]
     Dosage: 12.5 MG, UNK
     Route: 048

REACTIONS (2)
  - GLYCOSYLATED HAEMOGLOBIN INCREASED [None]
  - HYPOGLYCAEMIC COMA [None]
